FAERS Safety Report 7550343-8 (Version None)
Quarter: 2011Q2

REPORT INFORMATION
  Report Type: 
  Country: None (occurrence: None)
  Receive Date: 20110615
  Receipt Date: 20101104
  Transmission Date: 20111010
  Serious: No
  Sender: FDA-Public Use
  Company Number: A0890899A

PATIENT
  Age: 59 Year
  Sex: Male

DRUGS (2)
  1. NO CONCURRENT MEDICATIONS [Concomitant]
  2. PARNATE [Suspect]
     Indication: DEPRESSION
     Dosage: 30MG TWICE PER DAY
     Route: 048
     Dates: start: 20100101

REACTIONS (2)
  - PRODUCT QUALITY ISSUE [None]
  - DRUG INEFFECTIVE [None]
